FAERS Safety Report 16350976 (Version 2)
Quarter: 2019Q3

REPORT INFORMATION
  Report Type: Spontaneous
  Country: US (occurrence: US)
  Receive Date: 20190524
  Receipt Date: 20190819
  Transmission Date: 20191004
  Serious: Yes (Death, Other)
  Sender: FDA-Public Use
  Company Number: US-CURIUM-201900202

PATIENT
  Age: 8 Week
  Sex: Male
  Weight: 5.2 kg

DRUGS (3)
  1. TECHNESCAN MAG3 [Suspect]
     Active Substance: TECHNETIUM TC-99M TIATIDE
     Indication: RENAL SCAN
     Route: 042
     Dates: start: 20190507, end: 20190507
  2. ULTRA-TECHNEKOW [Suspect]
     Active Substance: TECHNETIUM TC-99M
     Indication: RENAL SCAN
     Route: 042
     Dates: start: 20190507, end: 20190507
  3. LASILIX [Concomitant]
     Active Substance: FUROSEMIDE
     Indication: RENAL SCAN
     Dosage: 5.2 MG TOTAL
     Route: 051
     Dates: start: 20190507, end: 20190507

REACTIONS (3)
  - Muscular weakness [Unknown]
  - Adverse event [Unknown]
  - Cardio-respiratory arrest [Fatal]

NARRATIVE: CASE EVENT DATE: 20190507
